FAERS Safety Report 20059533 (Version 2)
Quarter: 2021Q4

REPORT INFORMATION
  Report Type: Spontaneous
  Country: ES (occurrence: ES)
  Receive Date: 20211111
  Receipt Date: 20211122
  Transmission Date: 20220303
  Serious: Yes (Other)
  Sender: FDA-Public Use
  Company Number: ES-TEVA-2021-ES-1974916

PATIENT
  Age: 50 Year
  Sex: Female

DRUGS (22)
  1. ALPRAZOLAM [Suspect]
     Active Substance: ALPRAZOLAM
     Indication: Schizophrenia
     Dosage: 3 MILLIGRAM DAILY;
     Route: 065
  2. ALPRAZOLAM [Suspect]
     Active Substance: ALPRAZOLAM
     Indication: Depression
  3. BUPROPION [Suspect]
     Active Substance: BUPROPION
     Indication: Schizophrenia
     Dosage: 150 MILLIGRAM DAILY;
     Route: 065
  4. BUPROPION [Suspect]
     Active Substance: BUPROPION
     Indication: Depression
  5. LORMETAZEPAM [Suspect]
     Active Substance: LORMETAZEPAM
     Indication: Schizophrenia
     Dosage: 2 MILLIGRAM DAILY;
     Route: 065
  6. LORMETAZEPAM [Suspect]
     Active Substance: LORMETAZEPAM
     Indication: Depression
  7. QUETIAPINE [Suspect]
     Active Substance: QUETIAPINE
     Indication: Schizophrenia
     Dosage: 300 MILLIGRAM DAILY;
     Route: 065
  8. QUETIAPINE [Suspect]
     Active Substance: QUETIAPINE
     Indication: Depression
  9. CLOTHIAPINE [Suspect]
     Active Substance: CLOTHIAPINE
     Indication: Schizophrenia
     Dosage: 40 MILLIGRAM DAILY;
     Route: 065
  10. CLOTHIAPINE [Suspect]
     Active Substance: CLOTHIAPINE
     Indication: Depression
  11. REBOXETINE [Suspect]
     Active Substance: REBOXETINE
     Indication: Schizophrenia
     Dosage: 8 MILLIGRAM DAILY;
     Route: 065
  12. REBOXETINE [Suspect]
     Active Substance: REBOXETINE
     Indication: Depression
  13. TRAZODONE [Suspect]
     Active Substance: TRAZODONE HYDROCHLORIDE
     Indication: Schizophrenia
     Route: 065
  14. TRAZODONE [Suspect]
     Active Substance: TRAZODONE HYDROCHLORIDE
     Indication: Depression
  15. TRAZODONE HYDROCHLORIDE [Suspect]
     Active Substance: TRAZODONE HYDROCHLORIDE
     Indication: Schizophrenia
     Dosage: 100 MILLIGRAM DAILY;
     Route: 065
  16. TRAZODONE HYDROCHLORIDE [Suspect]
     Active Substance: TRAZODONE HYDROCHLORIDE
     Indication: Depression
  17. BUDESONIDE\FORMOTEROL [Concomitant]
     Active Substance: BUDESONIDE\FORMOTEROL
     Indication: Emphysema
     Dosage: INHALERS
     Route: 065
  18. TIOTROPIUM BROMIDE [Concomitant]
     Active Substance: TIOTROPIUM BROMIDE
     Indication: Emphysema
     Dosage: 2.5 MILLIGRAM DAILY;
     Route: 065
  19. PREGABALIN [Concomitant]
     Active Substance: PREGABALIN
     Indication: Intervertebral disc protrusion
     Dosage: 450 MILLIGRAM DAILY;
     Route: 065
  20. FENTANYL [Concomitant]
     Active Substance: FENTANYL
     Indication: Intervertebral disc protrusion
     Dosage: 600 MICROGRAM DAILY; TRANSDERMAL PATCHES, CHANGED EVERY THREE DAYS
     Route: 062
  21. ACETAMINOPHEN [Concomitant]
     Active Substance: ACETAMINOPHEN
     Indication: Intervertebral disc protrusion
     Dosage: 3 GRAM DAILY;
     Route: 065
  22. OMEPRAZOLE [Concomitant]
     Active Substance: OMEPRAZOLE
     Indication: Intervertebral disc protrusion
     Dosage: 20 MILLIGRAM DAILY;
     Route: 065

REACTIONS (2)
  - Dry mouth [Unknown]
  - Oral candidiasis [Recovered/Resolved]
